FAERS Safety Report 9753139 (Version 2)
Quarter: 2015Q3

REPORT INFORMATION
  Report Type: Spontaneous
  Country: US (occurrence: US)
  Receive Date: 20131213
  Receipt Date: 20150805
  Transmission Date: 20151125
  Serious: No
  Sender: FDA-Public Use
  Company Number: US-GILEAD-2010-0026366

PATIENT
  Age: 75 Year
  Sex: Female

DRUGS (15)
  1. TRICOR [Concomitant]
     Active Substance: FENOFIBRATE
  2. AVAPRO [Concomitant]
     Active Substance: IRBESARTAN
  3. LASIX [Concomitant]
     Active Substance: FUROSEMIDE
  4. LIPITOR [Concomitant]
     Active Substance: ATORVASTATIN CALCIUM
  5. LANOXIN [Concomitant]
     Active Substance: DIGOXIN
  6. NEURONTIN [Concomitant]
     Active Substance: GABAPENTIN
  7. LETAIRIS [Suspect]
     Active Substance: AMBRISENTAN
     Indication: PULMONARY ARTERIAL HYPERTENSION
     Route: 048
     Dates: start: 20091216
  8. HUMULIN N [Concomitant]
     Active Substance: INSULIN HUMAN
  9. DIGOXIN. [Concomitant]
     Active Substance: DIGOXIN
  10. LOVAZA [Concomitant]
     Active Substance: OMEGA-3-ACID ETHYL ESTERS
  11. SYNTHROID [Concomitant]
     Active Substance: LEVOTHYROXINE SODIUM
  12. COUMADIN [Concomitant]
     Active Substance: WARFARIN SODIUM
  13. DOXAZOSIN MESYLATE. [Concomitant]
     Active Substance: DOXAZOSIN MESYLATE
  14. LORTAB [Concomitant]
     Active Substance: ACETAMINOPHEN\HYDROCODONE BITARTRATE
  15. PREVACID [Concomitant]
     Active Substance: LANSOPRAZOLE

REACTIONS (1)
  - Oedema [Unknown]
